FAERS Safety Report 4871941-6 (Version None)
Quarter: 2006Q1

REPORT INFORMATION
  Report Type: 
  Country: None (occurrence: None)
  Receive Date: 20060104
  Receipt Date: 20050331
  Transmission Date: 20060701
  Serious: Yes (Hospitalization, Disabling)
  Sender: FDA-Public Use
  Company Number: US-ROCHE-400598

PATIENT
  Age: 15 Year
  Sex: Male
  Weight: 67.3 kg

DRUGS (2)
  1. ACCUTANE [Suspect]
     Indication: DRUG USE FOR UNKNOWN INDICATION
     Route: 048
     Dates: start: 19980407
  2. ACCUTANE [Suspect]
     Route: 048
     Dates: start: 19980414, end: 19980815

REACTIONS (35)
  - ANOREXIA [None]
  - ANTINEUTROPHIL CYTOPLASMIC ANTIBODY POSITIVE [None]
  - ARTHRALGIA [None]
  - CLOSTRIDIUM COLITIS [None]
  - COLITIS [None]
  - COLITIS ULCERATIVE [None]
  - CROHN'S DISEASE [None]
  - DEHYDRATION [None]
  - DRY SKIN [None]
  - EPISTAXIS [None]
  - FOLLICULITIS [None]
  - GASTROENTERITIS [None]
  - GASTROINTESTINAL DISORDER [None]
  - HERPES SIMPLEX [None]
  - ILEUS [None]
  - INFLAMMATORY BOWEL DISEASE [None]
  - INJURY [None]
  - INTESTINAL HAEMORRHAGE [None]
  - MULTI-ORGAN DISORDER [None]
  - NAUSEA [None]
  - OCULAR HYPERAEMIA [None]
  - PAIN [None]
  - PLATELET COUNT INCREASED [None]
  - POUCHITIS [None]
  - RECTAL HAEMORRHAGE [None]
  - SCAR [None]
  - SEBORRHOEIC KERATOSIS [None]
  - STAPHYLOCOCCAL INFECTION [None]
  - STOMACH DISCOMFORT [None]
  - SUBCUTANEOUS ABSCESS [None]
  - TENDONITIS [None]
  - THERAPY NON-RESPONDER [None]
  - WARM TYPE HAEMOLYTIC ANAEMIA [None]
  - WEIGHT DECREASED [None]
  - WHITE BLOOD CELL COUNT INCREASED [None]
